FAERS Safety Report 17843408 (Version 2)
Quarter: 2020Q2

REPORT INFORMATION
  Report Type: Spontaneous
  Country: JP (occurrence: JP)
  Receive Date: 20200530
  Receipt Date: 20200605
  Transmission Date: 20200714
  Serious: Yes (Hospitalization, Other)
  Sender: FDA-Public Use
  Company Number: JP-MACLEODS PHARMACEUTICALS US LTD-MAC2020026579

PATIENT

DRUGS (7)
  1. DONEPEZIL. [Suspect]
     Active Substance: DONEPEZIL
     Indication: POSTERIOR CORTICAL ATROPHY
     Dosage: 3 MILLIGRAM, QD
     Route: 065
  2. SUVOREXANT. [Concomitant]
     Active Substance: SUVOREXANT
     Indication: PRODUCT USED FOR UNKNOWN INDICATION
     Dosage: 20 MILLIGRAM, QD
     Route: 065
  3. MEMANTINE. [Suspect]
     Active Substance: MEMANTINE
     Indication: COGNITIVE DISORDER
  4. GALANTAMINE. [Suspect]
     Active Substance: GALANTAMINE
     Indication: COGNITIVE DISORDER
  5. DONEPEZIL. [Suspect]
     Active Substance: DONEPEZIL
     Indication: DEMENTIA ALZHEIMER^S TYPE
     Dosage: 10 MILLIGRAM, QD
     Route: 065
  6. MEMANTINE. [Suspect]
     Active Substance: MEMANTINE
     Indication: PSYCHIATRIC SYMPTOM
     Dosage: 10 MILLIGRAM, QD
     Route: 065
  7. GALANTAMINE. [Suspect]
     Active Substance: GALANTAMINE
     Indication: PSYCHIATRIC SYMPTOM
     Dosage: 4 MILLIGRAM, BID
     Route: 065

REACTIONS (5)
  - Parkinsonism [Recovered/Resolved]
  - Pleurothotonus [Recovered/Resolved]
  - Agitation [Recovered/Resolved]
  - Apraxia [Unknown]
  - Impulsive behaviour [Unknown]
